FAERS Safety Report 8595301-X (Version None)
Quarter: 2012Q3

REPORT INFORMATION
  Report Type: 
  Country: None (occurrence: None)
  Receive Date: 20120815
  Receipt Date: 20120613
  Transmission Date: 20120928
  Serious: Yes (Hospitalization, Disabling, Other)
  Sender: FDA-Public Use
  Company Number: US-009507513-1107USA01265

PATIENT

DRUGS (21)
  1. FOSAMAX [Suspect]
     Dosage: 70 MG, UNK
     Dates: start: 20080923
  2. FOSAMAX PLUS D [Suspect]
     Dosage: 70 MG, QW
     Route: 048
     Dates: start: 19960101, end: 20090901
  3. FOSAMAX PLUS D [Suspect]
     Indication: OSTEOPOROSIS
  4. ELOCON [Concomitant]
     Dates: start: 19960119
  5. TUMS E-X [Concomitant]
     Indication: OSTEOPOROSIS
  6. ACTONEL [Concomitant]
     Indication: OSTEOPOROSIS
  7. FOSAMAX [Suspect]
     Indication: OSTEOPOROSIS
     Dosage: 70 MG, QW
     Route: 048
     Dates: start: 19960101
  8. CALCIUM (UNSPECIFIED) [Concomitant]
     Dates: start: 19930914
  9. VIACTIV SOFT CALCIUM CHEWS [Concomitant]
     Indication: OSTEOPOROSIS
  10. CELEXA [Concomitant]
     Dosage: 20 MG, QD
     Route: 048
     Dates: start: 19990727
  11. FOSAMAX [Suspect]
     Dosage: 10 MG, QD
     Route: 048
     Dates: start: 19960101
  12. CALCIUM (UNSPECIFIED) [Concomitant]
     Indication: OSTEOPOROSIS
  13. RALOXIFENE HYDROCHLORIDE [Concomitant]
     Indication: OSTEOPOROSIS
  14. DERMA-SMOOTHE/FS [Concomitant]
     Indication: PSORIASIS
  15. TUMS E-X [Concomitant]
     Dates: start: 19940127
  16. VIACTIV SOFT CALCIUM CHEWS [Concomitant]
     Dates: start: 20021001
  17. DERMA-SMOOTHE/FS [Concomitant]
     Route: 061
     Dates: start: 20080707
  18. ACTONEL [Concomitant]
     Dates: start: 20080707
  19. ELOCON [Concomitant]
     Indication: PSORIASIS
  20. CELEXA [Concomitant]
     Indication: DEPRESSION
  21. RALOXIFENE HYDROCHLORIDE [Concomitant]
     Dosage: 60 MG, QD
     Dates: start: 19980624

REACTIONS (72)
  - RIB FRACTURE [None]
  - COLON ADENOMA [None]
  - ABDOMINAL DISCOMFORT [None]
  - URINARY TRACT INFECTION [None]
  - RASH [None]
  - SCOLIOSIS [None]
  - DRUG ADMINISTRATION ERROR [None]
  - DYSURIA [None]
  - INCREASED TENDENCY TO BRUISE [None]
  - NASOPHARYNGITIS [None]
  - FALL [None]
  - CERUMEN IMPACTION [None]
  - GASTROOESOPHAGEAL REFLUX DISEASE [None]
  - HIATUS HERNIA [None]
  - DRUG INTOLERANCE [None]
  - LYMPHADENOPATHY [None]
  - HERPES ZOSTER [None]
  - LIP DISORDER [None]
  - GAIT DISTURBANCE [None]
  - BREAST CANCER [None]
  - DEVICE FAILURE [None]
  - MUSCULOSKELETAL DISCOMFORT [None]
  - SINUSITIS [None]
  - DYSPHONIA [None]
  - CATARACT [None]
  - RESTLESS LEGS SYNDROME [None]
  - URTICARIA [None]
  - SKIN LESION [None]
  - JOINT SWELLING [None]
  - ECZEMA [None]
  - MUSCLE STRAIN [None]
  - ADVERSE EVENT [None]
  - DEAFNESS [None]
  - CHEST DISCOMFORT [None]
  - CHOLELITHIASIS [None]
  - COUGH [None]
  - EUSTACHIAN TUBE DYSFUNCTION [None]
  - FEMUR FRACTURE [None]
  - RADIUS FRACTURE [None]
  - INTESTINAL POLYP [None]
  - CONSTIPATION [None]
  - RENAL CYST [None]
  - ANXIETY [None]
  - ARTHROPATHY [None]
  - FOOT DEFORMITY [None]
  - NAIL DISORDER [None]
  - OEDEMA PERIPHERAL [None]
  - PLANTAR FASCIITIS [None]
  - DRUG INEFFECTIVE [None]
  - PSORIASIS [None]
  - BURSITIS [None]
  - OVERDOSE [None]
  - DERMAL CYST [None]
  - VAGINAL ODOUR [None]
  - DIARRHOEA [None]
  - SEBORRHOEIC KERATOSIS [None]
  - BUNION [None]
  - OTITIS EXTERNA [None]
  - HYPERCHOLESTEROLAEMIA [None]
  - OSTEOARTHRITIS [None]
  - KYPHOSIS [None]
  - FREQUENT BOWEL MOVEMENTS [None]
  - DERMATITIS [None]
  - OTITIS MEDIA [None]
  - HYPERKERATOSIS [None]
  - ONYCHOMYCOSIS [None]
  - TEMPOROMANDIBULAR JOINT SYNDROME [None]
  - ANGINA PECTORIS [None]
  - VARICOSE VEIN [None]
  - CHOLECYSTITIS ACUTE [None]
  - IRON DEFICIENCY ANAEMIA [None]
  - SENILE OSTEOPOROSIS [None]
